FAERS Safety Report 9506289 (Version 1)
Quarter: 2013Q1

REPORT INFORMATION
  Report Type: Spontaneous
  Country: US (occurrence: None)
  Receive Date: 20130301
  Receipt Date: 20130301
  Transmission Date: 20140127
  Serious: Yes (Hospitalization)
  Sender: FDA-Public Use
  Company Number: RB-41397-2012

PATIENT
  Age: 33 Year
  Sex: Male

DRUGS (1)
  1. SUBOXONE [Suspect]
     Indication: DRUG DEPENDENCE
     Dosage: 1-2 TABLETS  A DAY SUBLINGUAL
     Dates: end: 201206

REACTIONS (5)
  - Substance abuse [None]
  - Detoxification [None]
  - Back pain [None]
  - Anxiety [None]
  - Insomnia [None]
